FAERS Safety Report 5397053-3 (Version None)
Quarter: 2007Q3

REPORT INFORMATION
  Report Type: 
  Country: None (occurrence: None)
  Receive Date: 20070723
  Receipt Date: 20070717
  Transmission Date: 20080115
  Serious: Yes (Death, Hospitalization)
  Sender: FDA-Public Use
  Company Number: 163-20785-07061082

PATIENT
  Age: 69 Year
  Sex: Male

DRUGS (1)
  1. THALOMID [Suspect]
     Indication: MULTIPLE MYELOMA
     Dosage: 100MG TO 200MG DAILY, ORAL
     Route: 048
     Dates: start: 20070417

REACTIONS (1)
  - RENAL DISORDER [None]
